FAERS Safety Report 25934340 (Version 1)
Quarter: 2025Q4

REPORT INFORMATION
  Report Type: Report from Study
  Country: US (occurrence: US)
  Receive Date: 20251017
  Receipt Date: 20251017
  Transmission Date: 20260117
  Serious: Yes (Death)
  Sender: BAUSCH AND LOMB
  Company Number: US-BAUSCHBL-2025BNL030363

PATIENT
  Age: 80 Year
  Sex: Male

DRUGS (1)
  1. MIEBO [Suspect]
     Active Substance: PERFLUOROHEXYLOCTANE
     Indication: Product used for unknown indication
     Dosage: INSTILL ONE DROP INTO BOTH EYES FOUR TIMES DAILY.  BOTTLE PREPARATION IS REQUIRED. REFER TO PACKAGE
     Route: 047
     Dates: start: 20241104

REACTIONS (1)
  - Death [Fatal]
